FAERS Safety Report 17855623 (Version 1)
Quarter: 2020Q2

REPORT INFORMATION
  Report Type: Spontaneous
  Country: US (occurrence: US)
  Receive Date: 20200603
  Receipt Date: 20200603
  Transmission Date: 20200714
  Serious: Yes (Hospitalization)
  Sender: FDA-Public Use
  Company Number: None

PATIENT
  Age: 63 Year
  Sex: Male
  Weight: 88.7 kg

DRUGS (5)
  1. VORICONAZOLE 200 MG BID [Suspect]
     Active Substance: VORICONAZOLE
  2. CEFEPIME [Suspect]
     Active Substance: CEFEPIME HYDROCHLORIDE
     Indication: ENDOPHTHALMITIS
     Route: 042
     Dates: start: 20190606, end: 20190615
  3. ENOXAPARIN 40 MG SC DAILY [Concomitant]
  4. VANCOMYCIN [Suspect]
     Active Substance: VANCOMYCIN
     Indication: ENDOPHTHALMITIS
     Route: 042
     Dates: start: 20190606, end: 20190615
  5. ACETAMINOPHEN 650 MG PO BID [Concomitant]

REACTIONS (1)
  - Stevens-Johnson syndrome [None]

NARRATIVE: CASE EVENT DATE: 20190614
